FAERS Safety Report 24131788 (Version 1)
Quarter: 2024Q3

REPORT INFORMATION
  Report Type: Spontaneous
  Country: CN (occurrence: CN)
  Receive Date: 20240724
  Receipt Date: 20240724
  Transmission Date: 20241017
  Serious: Yes (Hospitalization)
  Sender: JOHNSON AND JOHNSON
  Company Number: CN-BAYER-2024A106655

PATIENT
  Age: 87 Year
  Sex: Male
  Weight: 74 kg

DRUGS (1)
  1. XARELTO [Suspect]
     Active Substance: RIVAROXABAN
     Indication: Atrial thrombosis
     Dosage: 10 MG, QD
     Route: 048
     Dates: start: 20240601, end: 20240716

REACTIONS (6)
  - Lower respiratory tract infection [Recovering/Resolving]
  - Cough [Unknown]
  - Febrile infection [Recovered/Resolved]
  - Productive cough [Unknown]
  - Haemoptysis [Recovering/Resolving]
  - Off label use [Unknown]

NARRATIVE: CASE EVENT DATE: 20240601
